FAERS Safety Report 9192815 (Version 3)
Quarter: 2013Q2

REPORT INFORMATION
  Report Type: Spontaneous
  Country: US (occurrence: US)
  Receive Date: 20130327
  Receipt Date: 20130412
  Transmission Date: 20140414
  Serious: Yes (Congenital Anomaly, Other)
  Sender: FDA-Public Use
  Company Number: US-PFIZER INC-2013096132

PATIENT
  Sex: Male

DRUGS (6)
  1. ZOLOFT [Suspect]
     Dosage: UNK
     Route: 064
     Dates: start: 20100401, end: 20100816
  2. SERTRALINE HCL [Suspect]
     Indication: DEPRESSION
     Dosage: UNK
     Route: 064
     Dates: start: 20100401, end: 20100816
  3. PRENATAL VITAMINS [Concomitant]
     Dosage: UNK
     Route: 064
  4. TYLENOL [Concomitant]
     Dosage: UNK
     Route: 064
  5. ADVIL [Concomitant]
     Dosage: UNK
     Route: 064
  6. IBUPROFEN [Concomitant]
     Dosage: UNK
     Route: 064

REACTIONS (2)
  - Foetal exposure during pregnancy [Unknown]
  - Hypospadias [Unknown]
